FAERS Safety Report 9681719 (Version 1)
Quarter: 2013Q4

REPORT INFORMATION
  Report Type: Report from Study
  Country: US (occurrence: US)
  Receive Date: 20131111
  Receipt Date: 20131111
  Transmission Date: 20140711
  Serious: Yes (Hospitalization)
  Sender: FDA-Public Use
  Company Number: US-GLAXOSMITHKLINE-A1048955A

PATIENT
  Age: 63 Year
  Sex: Male
  Weight: 86.1 kg

DRUGS (2)
  1. TRAMETINIB [Suspect]
     Indication: THYROID CANCER
     Dosage: 2MG PER DAY
     Route: 048
     Dates: start: 20130925
  2. PAZOPANIB [Suspect]
     Indication: THYROID CANCER
     Dosage: 800MG PER DAY
     Route: 048
     Dates: start: 20130925

REACTIONS (1)
  - Asthenia [Unknown]
